FAERS Safety Report 7501680-4 (Version None)
Quarter: 2011Q2

REPORT INFORMATION
  Report Type: 
  Country: None (occurrence: None)
  Receive Date: 20110525
  Receipt Date: 20110511
  Transmission Date: 20111010
  Serious: Yes (Hospitalization)
  Sender: FDA-Public Use
  Company Number: US-MYLANLABS-2011S1009923

PATIENT
  Age: 49 Year
  Sex: Male

DRUGS (1)
  1. DOXYCYCLINE [Suspect]
     Indication: COUGH
     Route: 048

REACTIONS (3)
  - CONJUNCTIVAL HYPERAEMIA [None]
  - STEVENS-JOHNSON SYNDROME [None]
  - CONJUNCTIVAL DISORDER [None]
